FAERS Safety Report 9055082 (Version 3)
Quarter: 2013Q1

REPORT INFORMATION
  Report Type: Spontaneous
  Country: FR (occurrence: FR)
  Receive Date: 20130206
  Receipt Date: 20130211
  Transmission Date: 20140127
  Serious: Yes (Other)
  Sender: FDA-Public Use
  Company Number: FR-ROCHE-1187371

PATIENT
  Age: 42 Year
  Sex: Female

DRUGS (3)
  1. RIVOTRIL [Suspect]
     Indication: FIBROMYALGIA
     Dosage: 2.5 MG/ML
     Route: 065
     Dates: start: 1998
  2. RIVOTRIL [Suspect]
     Indication: NEUROPATHY PERIPHERAL
  3. RIVOTRIL [Suspect]
     Indication: IRRITABLE BOWEL SYNDROME

REACTIONS (5)
  - Angioedema [Unknown]
  - Rash erythematous [Unknown]
  - Tachycardia [Unknown]
  - Insomnia [Unknown]
  - Hypoaesthesia [Unknown]
